FAERS Safety Report 5484367-1 (Version None)
Quarter: 2007Q4

REPORT INFORMATION
  Report Type: 
  Country: None (occurrence: None)
  Receive Date: 20071009
  Receipt Date: 20070917
  Transmission Date: 20080405
  Serious: Yes (Death, Hospitalization)
  Sender: FDA-Public Use
  Company Number: ENT 2007-0158

PATIENT
  Age: 57 Year
  Sex: Male

DRUGS (6)
  1. ENTACAPONE [Suspect]
     Indication: PARKINSON'S DISEASE
     Dosage: 200 MG ORAL
     Route: 048
     Dates: start: 20070322, end: 20070720
  2. LEVODOPA [Concomitant]
  3. TRIHEXYLPHENIDYL [Concomitant]
  4. ZOPICLONE [Concomitant]
  5. CLONAZEPAM [Concomitant]
  6. PERINDOPRIL ERBUMINE [Concomitant]

REACTIONS (7)
  - CARDIOPULMONARY FAILURE [None]
  - CARDIOVASCULAR INSUFFICIENCY [None]
  - DELUSION [None]
  - HALLUCINATION [None]
  - MUSCLE RIGIDITY [None]
  - PSYCHOTIC DISORDER [None]
  - SHOCK [None]
